FAERS Safety Report 22201047 (Version 4)
Quarter: 2023Q2

REPORT INFORMATION
  Report Type: Report from Study
  Country: DE (occurrence: DE)
  Receive Date: 20230412
  Receipt Date: 20230510
  Transmission Date: 20230722
  Serious: Yes (Hospitalization)
  Sender: FDA-Public Use
  Company Number: DE-TAKEDA-2022TUS052304

PATIENT
  Age: 4 Year
  Sex: Male

DRUGS (6)
  1. IDURSULFASE [Suspect]
     Active Substance: IDURSULFASE
     Indication: Mucopolysaccharidosis II
     Dosage: 9 MILLIGRAM, 1/WEEK
     Route: 042
  2. IDURSULFASE [Suspect]
     Active Substance: IDURSULFASE
     Dosage: 6 MILLIGRAM, 1/WEEK
     Route: 042
  3. IDURSULFASE [Suspect]
     Active Substance: IDURSULFASE
     Dosage: 9 MILLIGRAM, 1/WEEK
     Route: 042
  4. IDURSULFASE [Suspect]
     Active Substance: IDURSULFASE
     Dosage: 12 MILLIGRAM, 1/WEEK
     Route: 042
  5. IDURSULFASE [Suspect]
     Active Substance: IDURSULFASE
     Dosage: 12 MILLIGRAM, 1/WEEK
     Route: 042
  6. CETIRIZINE [Concomitant]
     Active Substance: CETIRIZINE HYDROCHLORIDE
     Indication: Premedication
     Dosage: 5 MILLIGRAM
     Route: 065

REACTIONS (17)
  - Abdominal pain [Recovering/Resolving]
  - Gastroenteritis [Unknown]
  - Poor venous access [Unknown]
  - Swelling of eyelid [Recovered/Resolved]
  - Swelling face [Recovered/Resolved]
  - Restlessness [Recovered/Resolved]
  - Ear pain [Recovered/Resolved]
  - Tonsillitis [Recovered/Resolved]
  - Bronchitis [Recovered/Resolved]
  - Asthenia [Not Recovered/Not Resolved]
  - Body temperature increased [Not Recovered/Not Resolved]
  - Rhinorrhoea [Unknown]
  - Conjunctivitis [Not Recovered/Not Resolved]
  - Oropharyngeal pain [Unknown]
  - Infection [Recovered/Resolved]
  - Cough [Recovered/Resolved]
  - Pyrexia [Recovered/Resolved]

NARRATIVE: CASE EVENT DATE: 20220729
